FAERS Safety Report 18801519 (Version 1)
Quarter: 2021Q1

REPORT INFORMATION
  Report Type: Spontaneous
  Country: TR (occurrence: TR)
  Receive Date: 20210128
  Receipt Date: 20210128
  Transmission Date: 20210419
  Serious: Yes (Death, Other)
  Sender: FDA-Public Use
  Company Number: TR-BAYER-2021-031994

PATIENT
  Age: 8 Month
  Sex: Female
  Weight: 4.41 kg

DRUGS (1)
  1. ALEVE [Suspect]
     Active Substance: NAPROXEN SODIUM

REACTIONS (6)
  - Placental disorder [Fatal]
  - Kidney malformation [Fatal]
  - Exposure during pregnancy [Fatal]
  - Renal tubular disorder [Fatal]
  - Caesarean section [Fatal]
  - Oligohydramnios [Fatal]

NARRATIVE: CASE EVENT DATE: 20060103
